FAERS Safety Report 23530713 (Version 1)
Quarter: 2024Q1

REPORT INFORMATION
  Report Type: Spontaneous
  Country: IT (occurrence: IT)
  Receive Date: 20240216
  Receipt Date: 20240216
  Transmission Date: 20240409
  Serious: Yes (Hospitalization, Other)
  Sender: FDA-Public Use
  Company Number: IT-CELLTRION INC.-2023IT025045

PATIENT

DRUGS (22)
  1. RITUXIMAB [Suspect]
     Active Substance: RITUXIMAB
     Indication: IgA nephropathy
     Dosage: 2 INFUSIONS OF 1G, TWO WEEKS APART
     Dates: start: 20220330
  2. RITUXIMAB [Suspect]
     Active Substance: RITUXIMAB
     Indication: Cutaneous vasculitis
     Dosage: 2 INFUSIONS OF 1G, TWO WEEKS APART
     Dates: start: 20230413
  3. INFLIXIMAB [Suspect]
     Active Substance: INFLIXIMAB
     Indication: Ankylosing spondylitis
     Route: 065
  4. METHYLPREDNISOLONE [Suspect]
     Active Substance: METHYLPREDNISOLONE
     Indication: IgA nephropathy
     Dosage: 125 MG
  5. METHYLPREDNISOLONE [Suspect]
     Active Substance: METHYLPREDNISOLONE
     Indication: Cutaneous vasculitis
  6. GOLIMUMAB [Suspect]
     Active Substance: GOLIMUMAB
     Indication: Ankylosing spondylitis
     Route: 065
  7. ETANERCEPT [Suspect]
     Active Substance: ETANERCEPT
     Indication: Ankylosing spondylitis
     Route: 065
  8. METHYLPREDNISOLONE [Concomitant]
     Active Substance: METHYLPREDNISOLONE
  9. PREDNISONE [Concomitant]
     Active Substance: PREDNISONE
  10. INSULIN NOS [Concomitant]
     Active Substance: INSULIN NOS
  11. ACETAMINOPHEN [Concomitant]
     Active Substance: ACETAMINOPHEN
  12. HEPARIN CALCIUM [Concomitant]
     Active Substance: HEPARIN CALCIUM
  13. FUROSEMIDE [Concomitant]
     Active Substance: FUROSEMIDE
  14. PANTOPRAZOLE [Concomitant]
     Active Substance: PANTOPRAZOLE
  15. ATORVASTATIN [Concomitant]
     Active Substance: ATORVASTATIN
  16. BISOPROLOL [Concomitant]
     Active Substance: BISOPROLOL\BISOPROLOL FUMARATE
  17. EZETIMIBE [Concomitant]
     Active Substance: EZETIMIBE
  18. PREGABALIN [Concomitant]
     Active Substance: PREGABALIN
  19. CHOLECALCIFEROL [Concomitant]
     Active Substance: CHOLECALCIFEROL
  20. METHOTREXATE [Concomitant]
     Active Substance: METHOTREXATE
     Indication: Ankylosing spondylitis
     Route: 065
  21. SECUKINUMAB [Concomitant]
     Active Substance: SECUKINUMAB
     Indication: Ankylosing spondylitis
     Route: 065
  22. HYDROXYCHLOROQUINE [Concomitant]
     Active Substance: HYDROXYCHLOROQUINE
     Indication: Ankylosing spondylitis
     Route: 065

REACTIONS (5)
  - Glomerulonephritis [Recovered/Resolved]
  - Henoch-Schonlein purpura [Recovered/Resolved]
  - Cutaneous vasculitis [Unknown]
  - Acute kidney injury [Recovered/Resolved]
  - Drug effective for unapproved indication [Unknown]
